FAERS Safety Report 9465539 (Version 2)
Quarter: 2013Q3

REPORT INFORMATION
  Report Type: Spontaneous
  Country: US (occurrence: US)
  Receive Date: 20130820
  Receipt Date: 20130913
  Transmission Date: 20140515
  Serious: No
  Sender: FDA-Public Use
  Company Number: US-TEVA-426778USA

PATIENT
  Sex: Female
  Weight: 45.4 kg

DRUGS (1)
  1. QNASL [Suspect]
     Route: 045

REACTIONS (4)
  - Nasal dryness [Not Recovered/Not Resolved]
  - Epistaxis [Not Recovered/Not Resolved]
  - Visual impairment [Not Recovered/Not Resolved]
  - Oedema [Not Recovered/Not Resolved]
